FAERS Safety Report 6819548-5 (Version None)
Quarter: 2010Q3

REPORT INFORMATION
  Report Type: 
  Country: None (occurrence: None)
  Receive Date: 20100707
  Receipt Date: 20100625
  Transmission Date: 20110219
  Serious: Yes (Other)
  Sender: FDA-Public Use
  Company Number: US-SANOFI-AVENTIS-2010SA037517

PATIENT
  Age: 38 Year
  Sex: Female

DRUGS (4)
  1. LOVENOX [Suspect]
     Indication: FACTOR V LEIDEN MUTATION
     Route: 065
     Dates: start: 20090901
  2. LOVENOX [Suspect]
     Route: 065
     Dates: start: 20090901
  3. ASPIRIN [Concomitant]
  4. PRENATAL VITAMINS [Concomitant]

REACTIONS (2)
  - ABORTION SPONTANEOUS [None]
  - DRUG EXPOSURE DURING PREGNANCY [None]
